FAERS Safety Report 5936435-5 (Version None)
Quarter: 2008Q4

REPORT INFORMATION
  Report Type: 
  Country: None (occurrence: None)
  Receive Date: 20081030
  Receipt Date: 20081022
  Transmission Date: 20090506
  Serious: Yes (Other)
  Sender: FDA-Public Use
  Company Number: US-BAYER-200816408NA

PATIENT
  Age: 51 Year
  Sex: Female
  Weight: 64 kg

DRUGS (65)
  1. MAGNEVIST [Suspect]
     Indication: FISTULOGRAM
     Route: 042
  2. OMNISCAN [Suspect]
     Indication: FISTULOGRAM
     Route: 042
  3. OPTIMARK [Suspect]
     Indication: NUCLEAR MAGNETIC RESONANCE IMAGING
     Route: 042
  4. MULTIHANCE [Suspect]
     Indication: FISTULOGRAM
     Route: 042
  5. PROHANCE [Suspect]
     Indication: FISTULOGRAM
     Route: 042
  6. STERIOIDS [Concomitant]
  7. PREDNISONE TAB [Concomitant]
     Dates: start: 20070729, end: 20070801
  8. LEVOTHROID [Concomitant]
     Route: 048
  9. LEVOTHROID [Concomitant]
     Dosage: TOTAL DAILY DOSE: 0.050 MG  UNIT DOSE: 0.025 MG
  10. ATENOLOL [Concomitant]
     Dosage: TOTAL DAILY DOSE: 50 MG  UNIT DOSE: 50 MG
     Route: 048
  11. ATENOLOL [Concomitant]
     Route: 048
  12. COUMADIN [Concomitant]
     Route: 048
     Dates: end: 20070101
  13. COUMADIN [Concomitant]
  14. COUMADIN [Concomitant]
     Dosage: AS USED: 2.5 MG  UNIT DOSE: 5 MG
  15. PROTONIX [Concomitant]
     Dosage: TOTAL DAILY DOSE: 80 MG  UNIT DOSE: 40 MG
     Route: 048
  16. PROTONIX [Concomitant]
  17. TUMS [Concomitant]
     Route: 048
  18. TUMS [Concomitant]
     Dosage: TOTAL DAILY DOSE: 1000 MG  UNIT DOSE: 500 MG
     Route: 048
  19. REGLAN [Concomitant]
     Dosage: TOTAL DAILY DOSE: 5 MG  UNIT DOSE: 5 MG
  20. AMIODARONE HCL [Concomitant]
     Dosage: TOTAL DAILY DOSE: 200 MG  UNIT DOSE: 200 MG
     Route: 048
  21. RENAGEL [Concomitant]
     Route: 048
  22. RENAGEL [Concomitant]
  23. EPOGEN [Concomitant]
  24. VICODIN [Concomitant]
  25. NEPHRO-VITE [Concomitant]
     Route: 048
  26. PROCARDIA XL [Concomitant]
     Route: 048
  27. ALLOPURINOL [Concomitant]
     Route: 048
  28. ALLOPURINOL [Concomitant]
  29. PRAVACHOL [Concomitant]
     Route: 048
  30. PRILOSEC [Concomitant]
     Route: 048
  31. PHOSLO [Concomitant]
  32. EPOETIN [Concomitant]
  33. NIFEDIPINE [Concomitant]
  34. PLENDIL [Concomitant]
     Route: 048
  35. SENSIPAR [Concomitant]
     Route: 048
  36. SENSIPAR [Concomitant]
     Dates: start: 20060101, end: 20070301
  37. VITAMIN B-12 [Concomitant]
  38. CYCLOSPORINE [Concomitant]
  39. IMODIUM [Concomitant]
  40. IMMUNE GLOBULIN INTRAVENOUS (HUMAN) [Concomitant]
     Route: 042
     Dates: start: 20070725, end: 20070725
  41. IMMUNE GLOBULIN INTRAVENOUS (HUMAN) [Concomitant]
     Route: 042
     Dates: start: 20070622, end: 20070622
  42. IMMUNE GLOBULIN INTRAVENOUS (HUMAN) [Concomitant]
     Route: 042
     Dates: start: 20070620, end: 20070620
  43. IMMUNE GLOBULIN INTRAVENOUS (HUMAN) [Concomitant]
     Route: 042
     Dates: start: 20070615, end: 20070615
  44. IMMUNE GLOBULIN INTRAVENOUS (HUMAN) [Concomitant]
     Route: 042
     Dates: start: 20070613, end: 20070613
  45. TYLENOL [Concomitant]
     Route: 048
     Dates: start: 20070725, end: 20070725
  46. TYLENOL [Concomitant]
     Route: 048
     Dates: start: 20070622, end: 20070622
  47. TYLENOL [Concomitant]
     Route: 048
     Dates: start: 20070620, end: 20070620
  48. TYLENOL [Concomitant]
     Route: 048
     Dates: start: 20070613, end: 20070613
  49. TYLENOL [Concomitant]
     Route: 048
     Dates: start: 20070615, end: 20070615
  50. TYLENOL [Concomitant]
  51. BENADRYL [Concomitant]
     Route: 048
     Dates: start: 20070615, end: 20070615
  52. BENADRYL [Concomitant]
     Route: 048
     Dates: start: 20070725, end: 20070725
  53. BENADRYL [Concomitant]
     Route: 048
     Dates: start: 20070620, end: 20070620
  54. BENADRYL [Concomitant]
     Route: 048
     Dates: start: 20070622, end: 20070622
  55. BENADRYL [Concomitant]
     Route: 048
     Dates: start: 20070613, end: 20070613
  56. UREACIN-20 20% [Concomitant]
     Route: 061
  57. CALCITRIOL [Concomitant]
     Route: 048
  58. LOPERAMIDE HCL [Concomitant]
     Route: 048
  59. PRAVASTATIN [Concomitant]
     Route: 048
  60. FOSRENOL [Concomitant]
     Route: 048
  61. METOCLOPRAMIDE [Concomitant]
     Route: 048
  62. NITROGLYCERIN [Concomitant]
     Route: 060
  63. OMEPRAZOLE [Concomitant]
     Route: 048
  64. TREMADOL [Concomitant]
  65. POLYETHYLENE GLYCOL 3350 AND ELECTOLYTES [Concomitant]
     Route: 048

REACTIONS (23)
  - ANXIETY [None]
  - BURNING SENSATION [None]
  - DERMATITIS [None]
  - DRY SKIN [None]
  - EMOTIONAL DISTRESS [None]
  - ERYTHEMA [None]
  - INJURY [None]
  - JOINT RANGE OF MOTION DECREASED [None]
  - JOINT STIFFNESS [None]
  - MOTOR DYSFUNCTION [None]
  - NEPHROGENIC SYSTEMIC FIBROSIS [None]
  - OEDEMA PERIPHERAL [None]
  - PAIN [None]
  - PAIN IN EXTREMITY [None]
  - PERIPHERAL COLDNESS [None]
  - PRURITUS [None]
  - SCAR [None]
  - SCLERODACTYLIA [None]
  - SKIN DISCOLOURATION [None]
  - SKIN EXFOLIATION [None]
  - SKIN FISSURES [None]
  - SKIN INDURATION [None]
  - SKIN TIGHTNESS [None]
